FAERS Safety Report 5714794-6 (Version None)
Quarter: 2008Q2

REPORT INFORMATION
  Report Type: 
  Country: None (occurrence: None)
  Receive Date: 20080423
  Receipt Date: 20070417
  Transmission Date: 20081010
  Serious: Yes (Death)
  Sender: FDA-Public Use
  Company Number: ES-ROCHE-493884

PATIENT
  Sex: Male
  Weight: 71 kg

DRUGS (3)
  1. CAPECITABINE [Suspect]
     Indication: COLORECTAL CANCER
     Dosage: GIVEN FROM DAYS 1 - 15 OF EACH 3 WEEKS CYCLE.
     Route: 048
     Dates: start: 20070123, end: 20070301
  2. BEVACIZUMAB [Suspect]
     Indication: COLORECTAL CANCER
     Route: 042
     Dates: start: 20070123, end: 20070215
  3. OXALIPLATIN [Suspect]
     Indication: COLORECTAL CANCER
     Route: 042
     Dates: start: 20070123, end: 20070215

REACTIONS (1)
  - DEATH [None]
